FAERS Safety Report 8531932-0 (Version None)
Quarter: 2012Q3

REPORT INFORMATION
  Report Type: 
  Country: None (occurrence: None)
  Receive Date: 20120723
  Receipt Date: 20120717
  Transmission Date: 20120928
  Serious: Yes (Other)
  Sender: FDA-Public Use
  Company Number: CH-BAXTER-2012BAX009261

PATIENT
  Age: 10 Year
  Sex: Male
  Weight: 28 kg

DRUGS (7)
  1. GENTAMICIN [Concomitant]
     Route: 048
  2. ZOFRAN [Concomitant]
  3. AMPHOTERICIN B [Concomitant]
     Route: 048
  4. COLISTIN [Concomitant]
     Dosage: 1.5 MIO IU
     Route: 048
  5. VANCOMYCIN [Concomitant]
     Route: 048
  6. KIOVIG [Suspect]
     Route: 042
  7. KIOVIG [Suspect]
     Indication: IMMUNOGLOBULINS DECREASED
     Route: 042

REACTIONS (8)
  - EPILEPSY [None]
  - BLOOD PRESSURE DECREASED [None]
  - HYPERSENSITIVITY [None]
  - CHILLS [None]
  - COLD SWEAT [None]
  - PYREXIA [None]
  - PHOTOPHOBIA [None]
  - EYE PAIN [None]
